FAERS Safety Report 22676629 (Version 4)
Quarter: 2023Q4

REPORT INFORMATION
  Report Type: Other
  Country: PK (occurrence: None)
  Receive Date: 20230706
  Receipt Date: 20231211
  Transmission Date: 20240109
  Serious: Yes (Death, Other)
  Sender: FDA-Public Use
  Company Number: PK-ROCHE-3382556

PATIENT
  Age: 51 Year
  Sex: Male

DRUGS (1)
  1. RITUXIMAB [Suspect]
     Active Substance: RITUXIMAB
     Indication: Follicular lymphoma
     Dosage: DOSE REDUCED FROM 600MG TO 500MG, 600MG RISTOVA WAS ADMINISTERED IN C1, 500MG WAS PURCHASED BY THE P
     Route: 042
     Dates: start: 20230620

REACTIONS (3)
  - Lymphoma transformation [Unknown]
  - Asthenia [Unknown]
  - Neoplasm malignant [Fatal]

NARRATIVE: CASE EVENT DATE: 20230620
